FAERS Safety Report 26112383 (Version 2)
Quarter: 2025Q4

REPORT INFORMATION
  Report Type: Spontaneous
  Country: US (occurrence: US)
  Receive Date: 20251202
  Receipt Date: 20251204
  Transmission Date: 20260117
  Serious: Yes (Hospitalization, Other)
  Sender: PFIZER
  Company Number: US-PFIZER INC-PV202500137412

PATIENT
  Age: 72 Year
  Sex: Female

DRUGS (11)
  1. HYDROXYZINE PAMOATE [Suspect]
     Active Substance: HYDROXYZINE PAMOATE
     Dosage: UNK
  2. LEVOTHYROXINE SODIUM [Suspect]
     Active Substance: LEVOTHYROXINE SODIUM
     Dosage: UNK
  3. BACLOFEN [Suspect]
     Active Substance: BACLOFEN
     Dosage: UNK
  4. TIZANIDINE [Suspect]
     Active Substance: TIZANIDINE
     Dosage: UNK
  5. BUSPIRONE [Suspect]
     Active Substance: BUSPIRONE HYDROCHLORIDE
     Dosage: UNK
  6. TRAZODONE [Suspect]
     Active Substance: TRAZODONE HYDROCHLORIDE
     Dosage: UNK
  7. ALPRAZOLAM [Suspect]
     Active Substance: ALPRAZOLAM
     Dosage: UNK
  8. DULOXETINE [Suspect]
     Active Substance: DULOXETINE
     Dosage: UNK
  9. PREGABALIN [Suspect]
     Active Substance: PREGABALIN
     Dosage: UNK
  10. OXYCODONE AND ACETAMINOPHEN [Suspect]
     Active Substance: ACETAMINOPHEN\OXYCODONE HYDROCHLORIDE
     Dosage: UNK
  11. CLONIDINE [Suspect]
     Active Substance: CLONIDINE
     Dosage: UNK, AS NEEDED

REACTIONS (2)
  - Altered state of consciousness [Recovered/Resolved]
  - Tremor [Recovered/Resolved]
